FAERS Safety Report 17158823 (Version 2)
Quarter: 2019Q4

REPORT INFORMATION
  Report Type: Spontaneous
  Country: JP (occurrence: JP)
  Receive Date: 20191216
  Receipt Date: 20191231
  Transmission Date: 20200122
  Serious: Yes (Death)
  Sender: FDA-Public Use
  Company Number: NVSC2019JP068969

PATIENT
  Age: 88 Year
  Sex: Male

DRUGS (10)
  1. ROSUVASTATIN CALCIUM. [Suspect]
     Active Substance: ROSUVASTATIN CALCIUM
     Indication: THROMBOTIC CEREBRAL INFARCTION
     Dosage: UNK
     Route: 065
     Dates: start: 2019, end: 2019
  2. ACETYLSALICYLIC ACID [Suspect]
     Active Substance: ASPIRIN
     Indication: THROMBOTIC CEREBRAL INFARCTION
     Dosage: UNK
     Route: 065
     Dates: start: 2019, end: 2019
  3. CILOSTAZOL. [Suspect]
     Active Substance: CILOSTAZOL
     Indication: THROMBOTIC CEREBRAL INFARCTION
     Dosage: UNK
     Route: 065
     Dates: start: 2019
  4. CLOPIDOGREL [Suspect]
     Active Substance: CLOPIDOGREL BISULFATE
     Indication: THROMBOTIC CEREBRAL INFARCTION
     Dosage: UNK
     Route: 065
     Dates: start: 2019, end: 2019
  5. CLOPIDOGREL [Suspect]
     Active Substance: CLOPIDOGREL BISULFATE
     Dosage: UNK
     Route: 065
     Dates: start: 2019, end: 2019
  6. EICOSAPENTAENOIC ACID ETHYL ESTER [Suspect]
     Active Substance: ICOSAPENT ETHYL
     Indication: THROMBOTIC CEREBRAL INFARCTION
     Dosage: UNK
     Route: 065
     Dates: start: 2019, end: 2019
  7. ACETYLSALICYLIC ACID [Suspect]
     Active Substance: ASPIRIN
     Dosage: UNK
     Route: 065
     Dates: start: 2019
  8. ARGATROBAN. [Suspect]
     Active Substance: ARGATROBAN
     Dosage: UNK
     Route: 065
     Dates: start: 2019
  9. ARGATROBAN. [Suspect]
     Active Substance: ARGATROBAN
     Indication: THROMBOTIC CEREBRAL INFARCTION
     Dosage: UNK
     Route: 065
     Dates: start: 2019, end: 2019
  10. ROSUVASTATIN CALCIUM. [Suspect]
     Active Substance: ROSUVASTATIN CALCIUM
     Dosage: UNK
     Route: 065
     Dates: start: 2019, end: 2019

REACTIONS (5)
  - Brain herniation [Fatal]
  - Arterial thrombosis [Fatal]
  - Brain oedema [Fatal]
  - Cerebral infarction [Fatal]
  - Thrombotic thrombocytopenic purpura [Fatal]

NARRATIVE: CASE EVENT DATE: 2019
